FAERS Safety Report 15772406 (Version 2)
Quarter: 2019Q2

REPORT INFORMATION
  Report Type: Report from Study
  Country: None (occurrence: US)
  Receive Date: 20181228
  Receipt Date: 20190402
  Transmission Date: 20190711
  Serious: Yes (Hospitalization)
  Sender: FDA-Public Use
  Company Number: US-ABBVIE-18K-163-2604759-00

PATIENT
  Age: 70 Year
  Sex: Female
  Weight: 51.3 kg

DRUGS (1)
  1. HUMIRA [Suspect]
     Active Substance: ADALIMUMAB
     Indication: RHEUMATOID ARTHRITIS
     Route: 058

REACTIONS (3)
  - White blood cell count abnormal [Unknown]
  - Appendix disorder [Unknown]
  - Pain [Unknown]

NARRATIVE: CASE EVENT DATE: 2018
